FAERS Safety Report 9416466 (Version 2)
Quarter: 2013Q3

REPORT INFORMATION
  Report Type: Spontaneous
  Country: TR (occurrence: None)
  Receive Date: 20130718
  Receipt Date: 20130726
  Transmission Date: 20140515
  Serious: Yes (Other)
  Sender: FDA-Public Use
  Company Number: AG-2013-014120

PATIENT
  Age: 9 Year
  Sex: Female
  Weight: 21.5 kg

DRUGS (5)
  1. BUSULFAN [Suspect]
     Indication: GRAFT VERSUS HOST DISEASE
     Dosage: IN 4 DAYS BU
  2. BUSULFAN [Suspect]
     Dosage: IN 4 DAYS BU
  3. CYCLOPHOSPHAMIDE [Suspect]
     Indication: GRAFT VERSUS HOST DISEASE
     Dosage: ( 120 MG, IN 2 DAQYS)
  4. METHOTREXATE (METHOTREXATE) (UNKNOWN) [Concomitant]
  5. CYCLOSPORINE (CICLOSPORIN) (UNKNOWN) [Concomitant]

REACTIONS (2)
  - Primary adrenal insufficiency [None]
  - Graft versus host disease [None]
